FAERS Safety Report 18767130 (Version 1)
Quarter: 2021Q1

REPORT INFORMATION
  Report Type: Spontaneous
  Country: US (occurrence: US)
  Receive Date: 20210119
  Receipt Date: 20210119
  Transmission Date: 20210419
  Serious: Yes (Life-Threatening)
  Sender: FDA-Public Use
  Company Number: None

PATIENT
  Age: 0 Day
  Sex: Male
  Weight: 2.72 kg

DRUGS (2)
  1. VERO INO [INHALED NITROUS OXIDE] [Suspect]
     Active Substance: NITROUS OXIDE
  2. VERO [Concomitant]
     Dates: start: 20210111, end: 20210119

REACTIONS (1)
  - Device malfunction [None]

NARRATIVE: CASE EVENT DATE: 20210111
